FAERS Safety Report 11345162 (Version 1)
Quarter: 2015Q3

REPORT INFORMATION
  Report Type: Spontaneous
  Country: US (occurrence: US)
  Receive Date: 20150806
  Receipt Date: 20150806
  Transmission Date: 20151125
  Serious: No
  Sender: FDA-Public Use
  Company Number: US-BEH-2014044162

PATIENT
  Age: 18 Year
  Sex: Female

DRUGS (1)
  1. CARIMUNE [Suspect]
     Active Substance: HUMAN IMMUNOGLOBULIN G
     Dosage: APR-2009

REACTIONS (3)
  - Cyanosis [Unknown]
  - Feeling cold [Unknown]
  - Chills [Unknown]

NARRATIVE: CASE EVENT DATE: 200904
